FAERS Safety Report 5341756-3 (Version None)
Quarter: 2007Q2

REPORT INFORMATION
  Report Type: 
  Country: None (occurrence: None)
  Receive Date: 20070529
  Receipt Date: 20070529
  Transmission Date: 20071010
  Serious: Yes (Other)
  Sender: FDA-Public Use
  Company Number: None

PATIENT
  Sex: Female
  Weight: 86.1834 kg

DRUGS (1)
  1. MIRENA [Suspect]
     Indication: CONTRACEPTION
     Dosage: IUD INSERTED APRIL 6 2006 ONE TIME INTRA-UTERI
     Route: 015
     Dates: start: 20060406, end: 20070525

REACTIONS (24)
  - AGGRESSION [None]
  - ALOPECIA [None]
  - AMNESIA [None]
  - ARTHRALGIA [None]
  - BACK PAIN [None]
  - DECREASED INTEREST [None]
  - DYSMENORRHOEA [None]
  - FATIGUE [None]
  - FEELING ABNORMAL [None]
  - GASTROINTESTINAL DISORDER [None]
  - GENERAL PHYSICAL HEALTH DETERIORATION [None]
  - IMMUNE SYSTEM DISORDER [None]
  - INSOMNIA [None]
  - MENTAL DISORDER [None]
  - MENTAL IMPAIRMENT [None]
  - METRORRHAGIA [None]
  - MIGRAINE [None]
  - MOOD ALTERED [None]
  - MUSCLE SPASMS [None]
  - PALPITATIONS [None]
  - PANIC ATTACK [None]
  - PNEUMONIA [None]
  - SENSORY DISTURBANCE [None]
  - SINUSITIS [None]
